FAERS Safety Report 19739241 (Version 1)
Quarter: 2021Q3

REPORT INFORMATION
  Report Type: Spontaneous
  Country: GB (occurrence: GB)
  Receive Date: 20210824
  Receipt Date: 20210824
  Transmission Date: 20211014
  Serious: Yes (Other)
  Sender: FDA-Public Use
  Company Number: GB-PFIZER INC-202101047496

PATIENT
  Age: 72 Year
  Sex: Female
  Weight: 95.25 kg

DRUGS (13)
  1. DOXYCYCLINE. [Concomitant]
     Active Substance: DOXYCYCLINE
     Dosage: 100 MG, 1X/DAY
     Dates: start: 20210716
  2. HYLO?FORTE [Concomitant]
     Active Substance: HYALURONATE SODIUM
     Dosage: 1 DROP, 3X/DAY
     Dates: start: 20210809
  3. NAPROXEN. [Concomitant]
     Active Substance: NAPROXEN
     Dosage: 250 MG, 2X/DAY
     Dates: start: 20210527
  4. ALLOPURINOL. [Concomitant]
     Active Substance: ALLOPURINOL
     Dosage: 100 MG, 1X/DAY
     Dates: start: 20210524
  5. LAXIDO [Concomitant]
     Active Substance: POLYETHYLENE GLYCOL 3350\POTASSIUM CHLORIDE\SODIUM BICARBONATE\SODIUM CHLORIDE
     Dosage: 1 DF, 1X/DAY
     Route: 048
     Dates: start: 20210809
  6. PARACETAMOL [Concomitant]
     Active Substance: ACETAMINOPHEN
     Dosage: 1 TO 2 TABLETS UP TO FOUR TIMES DAILY AS REQUIRED
     Dates: start: 20210621
  7. CLARITHROMYCIN. [Concomitant]
     Active Substance: CLARITHROMYCIN
     Dosage: 500 MG, 2X/DAY
     Dates: start: 20210622
  8. FUROSEMIDE. [Concomitant]
     Active Substance: FUROSEMIDE
     Dosage: 40 MG, 1X/DAY
     Dates: start: 20210524
  9. AMITRIPTYLINE [Concomitant]
     Active Substance: AMITRIPTYLINE
     Dosage: AT NIGHT. CAN INCREASE IN 10MG STEPS IF NEEDED UP TO A SUGGESTED MAX OF 30MG  NOCTE AND THE
     Dates: start: 20210621
  10. DOXYCYCLINE. [Concomitant]
     Active Substance: DOXYCYCLINE
     Dosage: 200 MG, 1X/DAY
     Dates: start: 20210715, end: 20210715
  11. CLINDAMYCIN HCL [Suspect]
     Active Substance: CLINDAMYCIN HYDROCHLORIDE
     Indication: CELLULITIS
     Dosage: 75 MG
     Route: 048
  12. DICLOFENAC DIETHYLAMMONIUM [Concomitant]
     Active Substance: DICLOFENAC DIETHYLAMINE
     Dosage: APPLY
     Dates: start: 20210524, end: 20210712
  13. LEVETIRACETAM. [Concomitant]
     Active Substance: LEVETIRACETAM
     Dosage: 250 MG, 2X/DAY
     Dates: start: 20210712

REACTIONS (8)
  - Rash [Recovered/Resolved]
  - Mental disorder [Unknown]
  - Pain in extremity [Unknown]
  - Nausea [Recovered/Resolved]
  - Tonic convulsion [Unknown]
  - Seizure [Unknown]
  - Sepsis [Unknown]
  - Depressed level of consciousness [Unknown]

NARRATIVE: CASE EVENT DATE: 20210627
